FAERS Safety Report 25149117 (Version 1)
Quarter: 2025Q2

REPORT INFORMATION
  Report Type: Spontaneous
  Country: GB (occurrence: GB)
  Receive Date: 20250402
  Receipt Date: 20250402
  Transmission Date: 20250717
  Serious: Yes (Death, Life-Threatening, Hospitalization, Other)
  Sender: ROCHE
  Company Number: None

PATIENT
  Age: 43 Year
  Sex: Female

DRUGS (8)
  1. RITUXIMAB [Suspect]
     Active Substance: RITUXIMAB
     Indication: Seronegative arthritis
     Route: 065
  2. ETORICOXIB [Concomitant]
     Active Substance: ETORICOXIB
  3. PROMETHAZINE [Concomitant]
     Active Substance: PROMETHAZINE HYDROCHLORIDE
     Route: 050
  4. DESOGESTREL [Concomitant]
     Active Substance: DESOGESTREL
     Route: 050
  5. LEVOTHYROXINE [Concomitant]
     Active Substance: LEVOTHYROXINE
     Route: 050
  6. LANSOPRAZOLE [Concomitant]
     Active Substance: LANSOPRAZOLE
     Route: 050
  7. FOLIC ACID [Concomitant]
     Active Substance: FOLIC ACID
     Route: 050
  8. COCODAMOL [Concomitant]
     Active Substance: ACETAMINOPHEN\CODEINE PHOSPHATE
     Route: 050

REACTIONS (15)
  - Vaginal infection [Fatal]
  - Vaginal haemorrhage [Unknown]
  - Cervix inflammation [Not Recovered/Not Resolved]
  - Sepsis [Fatal]
  - Vulvovaginal injury [Unknown]
  - Vulvovaginal inflammation [Not Recovered/Not Resolved]
  - Liver function test abnormal [Unknown]
  - Peritonitis [Fatal]
  - Disseminated intravascular coagulation [Unknown]
  - Pyrexia [Not Recovered/Not Resolved]
  - Inflammatory marker increased [Not Recovered/Not Resolved]
  - Septic shock [Not Recovered/Not Resolved]
  - Acute kidney injury [Unknown]
  - Hepatic failure [Unknown]
  - Urogenital fistula [Unknown]

NARRATIVE: CASE EVENT DATE: 20230101
